FAERS Safety Report 4317821-6 (Version None)
Quarter: 2004Q1

REPORT INFORMATION
  Report Type: 
  Country: None (occurrence: None)
  Receive Date: 20040312
  Receipt Date: 20040302
  Transmission Date: 20041129
  Serious: Yes (Other)
  Sender: FDA-Public Use
  Company Number: 2004201967US

PATIENT
  Age: 47 Year
  Sex: Female

DRUGS (5)
  1. DELTASONE [Suspect]
  2. TACROLIMUS (TACROLIMUS) [Concomitant]
  3. MYCOPHENOLATE MOFETIL (MYCOPHENOLATE MOFETIL) [Concomitant]
  4. THYMOGLOBULIN [Concomitant]
  5. METHYLPREDNISOLONE [Concomitant]

REACTIONS (4)
  - OEDEMA [None]
  - PERIORBITAL DISORDER [None]
  - PROTEIN URINE PRESENT [None]
  - WEIGHT INCREASED [None]
